FAERS Safety Report 8021653-5 (Version None)
Quarter: 2011Q4

REPORT INFORMATION
  Report Type: 
  Country: None (occurrence: None)
  Receive Date: 20111230
  Receipt Date: 20111220
  Transmission Date: 20120403
  Serious: Yes (Hospitalization)
  Sender: FDA-Public Use
  Company Number: JPI-P-018469

PATIENT
  Age: 45 Year
  Sex: Female

DRUGS (7)
  1. DULOXETINE HYDROCHLORIDE [Concomitant]
  2. SIMVASTATIN [Concomitant]
  3. XYREM [Suspect]
     Indication: NARCOLEPSY
     Dosage: 4.5 GM (2.25 GM,2 IN 1 D),ORAL,  ORAL, 8 GM (4 GM,2 IN 1 D),ORAL
     Route: 048
     Dates: start: 20110720
  4. XYREM [Suspect]
     Indication: NARCOLEPSY
     Dosage: 4.5 GM (2.25 GM,2 IN 1 D),ORAL,  ORAL, 8 GM (4 GM,2 IN 1 D),ORAL
     Route: 048
     Dates: start: 20110101, end: 20110101
  5. XYREM [Suspect]
     Indication: NARCOLEPSY
     Dosage: 4.5 GM (2.25 GM,2 IN 1 D),ORAL,  ORAL, 8 GM (4 GM,2 IN 1 D),ORAL
     Route: 048
     Dates: start: 20110309, end: 20110101
  6. PROPRANOLOL [Concomitant]
  7. LEVOTHYROXINE SODIUM [Concomitant]

REACTIONS (8)
  - CHEST PAIN [None]
  - INSOMNIA [None]
  - HEADACHE [None]
  - HYPERTENSION [None]
  - CARPAL TUNNEL SYNDROME [None]
  - MYOCARDIAL INFARCTION [None]
  - HYPOAESTHESIA [None]
  - MIGRAINE [None]
